FAERS Safety Report 6160138-8 (Version None)
Quarter: 2009Q2

REPORT INFORMATION
  Report Type: 
  Country: None (occurrence: None)
  Receive Date: 20090420
  Receipt Date: 20090410
  Transmission Date: 20091009
  Serious: Yes (Hospitalization)
  Sender: FDA-Public Use
  Company Number: A0718455A

PATIENT
  Age: 58 Year
  Sex: Male
  Weight: 96.4 kg

DRUGS (6)
  1. AVANDIA [Suspect]
     Dosage: 4MG PER DAY
     Dates: start: 20021018, end: 20050101
  2. AVANDAMET [Suspect]
     Route: 048
     Dates: start: 20021018, end: 20050101
  3. AVANDARYL [Suspect]
     Dates: start: 20021018, end: 20050101
  4. METFORMIN HCL [Concomitant]
     Dates: start: 20040331
  5. GLUCOTROL [Concomitant]
     Dates: start: 20040331, end: 20050201
  6. DIABETA [Concomitant]
     Dates: start: 19980101

REACTIONS (5)
  - ARRHYTHMIA [None]
  - CARDIAC FAILURE CONGESTIVE [None]
  - CORONARY ARTERY DISEASE [None]
  - LOSS OF CONSCIOUSNESS [None]
  - MYOCARDIAL INFARCTION [None]
